FAERS Safety Report 23075304 (Version 1)
Quarter: 2023Q4

REPORT INFORMATION
  Report Type: Spontaneous
  Country: US (occurrence: US)
  Receive Date: 20231017
  Receipt Date: 20231017
  Transmission Date: 20240110
  Serious: No
  Sender: FDA-Public Use
  Company Number: US-SA-SAC20231011001059

PATIENT
  Sex: Female

DRUGS (3)
  1. DUPIXENT [Suspect]
     Active Substance: DUPILUMAB
     Indication: Illness
     Dosage: 300 MG, QOW
     Route: 058
  2. DUPIXENT [Suspect]
     Active Substance: DUPILUMAB
     Indication: Asthma
  3. LEVAQUIN [Suspect]
     Active Substance: LEVOFLOXACIN
     Indication: Upper respiratory tract infection
     Dosage: UNK

REACTIONS (4)
  - Upper respiratory tract infection [Unknown]
  - Cough [Not Recovered/Not Resolved]
  - Urinary tract infection [Unknown]
  - Drug hypersensitivity [Unknown]
